FAERS Safety Report 8217920-2 (Version None)
Quarter: 2012Q1

REPORT INFORMATION
  Report Type: 
  Country: None (occurrence: None)
  Receive Date: 20120314
  Receipt Date: 20120228
  Transmission Date: 20120608
  Serious: Yes (Other)
  Sender: FDA-Public Use
  Company Number: FK201200637

PATIENT
  Age: 25 Year
  Sex: Male

DRUGS (2)
  1. GEMCITABINE [Suspect]
     Indication: TRANSITIONAL CELL CARCINOMA
     Dosage: 1000 MG/M2, INTRAVENOUS (NOT OTHERWISE SPECIFIED)
     Route: 042
  2. CISPLATIN [Suspect]
     Indication: TRANSITIONAL CELL CARCINOMA
     Dosage: SEE IMAGE
     Route: 042

REACTIONS (3)
  - ANAEMIA [None]
  - GRANULOCYTOPENIA [None]
  - CREATININE RENAL CLEARANCE DECREASED [None]
